FAERS Safety Report 8392013-2 (Version None)
Quarter: 2012Q2

REPORT INFORMATION
  Report Type: 
  Country: None (occurrence: None)
  Receive Date: 20120529
  Receipt Date: 20120524
  Transmission Date: 20120825
  Serious: Yes (Death)
  Sender: FDA-Public Use
  Company Number: CA-ROCHE-1072827

PATIENT
  Sex: Female
  Weight: 51.756 kg

DRUGS (5)
  1. XELODA [Suspect]
     Indication: METASTASES TO LIVER
     Route: 048
     Dates: start: 20120315, end: 20120101
  2. TYLENOL [Concomitant]
  3. METFORMIN HCL [Concomitant]
  4. PREDNISONE TAB [Concomitant]
  5. MEGESTROL ACETATE [Concomitant]

REACTIONS (1)
  - DEATH [None]
